FAERS Safety Report 13904684 (Version 1)
Quarter: 2017Q3

REPORT INFORMATION
  Report Type: Spontaneous
  Country: US (occurrence: US)
  Receive Date: 20170824
  Receipt Date: 20170824
  Transmission Date: 20171127
  Serious: Yes (Death)
  Sender: FDA-Public Use
  Company Number: None

PATIENT
  Age: 53 Year
  Sex: Female

DRUGS (11)
  1. AKYNZEO [Suspect]
     Active Substance: NETUPITANT\PALONOSETRON HYDROCHLORIDE
     Indication: NAUSEA
     Route: 048
     Dates: start: 20170621, end: 20170824
  2. EMLA [Concomitant]
     Active Substance: LIDOCAINE\PRILOCAINE
  3. LACTULOSE. [Concomitant]
     Active Substance: LACTULOSE
  4. ATIVAN [Concomitant]
     Active Substance: LORAZEPAM
  5. DIFLUCAN [Concomitant]
     Active Substance: FLUCONAZOLE
  6. MAGNESIUM OXIDE. [Concomitant]
     Active Substance: MAGNESIUM OXIDE
  7. LORAZEPAM. [Concomitant]
     Active Substance: LORAZEPAM
  8. NYSTATIN. [Concomitant]
     Active Substance: NYSTATIN
  9. ARIMIDEX [Concomitant]
     Active Substance: ANASTROZOLE
  10. LEVAQUIN [Concomitant]
     Active Substance: LEVOFLOXACIN
  11. OMEPRAZOLE. [Concomitant]
     Active Substance: OMEPRAZOLE

REACTIONS (1)
  - Disease progression [None]
